FAERS Safety Report 19064971 (Version 1)
Quarter: 2021Q1

REPORT INFORMATION
  Report Type: Spontaneous
  Country: US (occurrence: US)
  Receive Date: 20210326
  Receipt Date: 20210326
  Transmission Date: 20210420
  Serious: Yes (Other)
  Sender: FDA-Public Use
  Company Number: US-ELI_LILLY_AND_COMPANY-US202103008999

PATIENT
  Age: 61 Year
  Sex: Female

DRUGS (1)
  1. EMGALITY [Suspect]
     Active Substance: GALCANEZUMAB-GNLM
     Indication: PRODUCT USED FOR UNKNOWN INDICATION
     Dosage: 120 MG, UNKNOWN
     Route: 065

REACTIONS (5)
  - Drug hypersensitivity [Not Recovered/Not Resolved]
  - Migraine [Unknown]
  - Injection site pain [Recovered/Resolved]
  - Drug interaction [Unknown]
  - Anaphylactic reaction [Unknown]

NARRATIVE: CASE EVENT DATE: 20210312
